FAERS Safety Report 15289820 (Version 1)
Quarter: 2018Q3

REPORT INFORMATION
  Report Type: Spontaneous
  Country: FR (occurrence: FR)
  Receive Date: 20180817
  Receipt Date: 20180817
  Transmission Date: 20181010
  Serious: Yes (Other)
  Sender: FDA-Public Use
  Company Number: FR-TEVA-2018-FR-942695

PATIENT
  Age: 82 Year
  Sex: Female
  Weight: 74 kg

DRUGS (11)
  1. CLAMOXYL 1 G, COMPRIM? DISPERSIBLE [Suspect]
     Active Substance: AMOXICILLIN
     Indication: INTERVERTEBRAL DISCITIS
     Dosage: 12 GRAM DAILY;
     Route: 048
     Dates: start: 20180514, end: 20180627
  2. VENLAFAXINE [Concomitant]
     Active Substance: VENLAFAXINE HYDROCHLORIDE
     Route: 065
  3. FUROSEMIDE. [Concomitant]
     Active Substance: FUROSEMIDE
     Route: 065
  4. SPIRONOLACTONE. [Suspect]
     Active Substance: SPIRONOLACTONE
     Indication: HYPERTENSION
     Dosage: 12.5 MILLIGRAM DAILY;
     Route: 048
     Dates: start: 20180515, end: 20180627
  5. SERESTA 10 MG, COMPRIM? [Suspect]
     Active Substance: OXAZEPAM
     Indication: HALLUCINATION
     Dosage: 1 DOSAGE FORMS DAILY;
     Route: 048
     Dates: start: 20180531, end: 20180627
  6. AZOPT [Concomitant]
     Active Substance: BRINZOLAMIDE
     Route: 065
  7. DIFFU K, G?LULE [Concomitant]
     Active Substance: POTASSIUM CHLORIDE
     Route: 065
  8. BISOPROLOL (HEMIFUMARATE DE) [Concomitant]
     Active Substance: BISOPROLOL FUMARATE
     Route: 065
  9. PARACETAMOL [Concomitant]
     Active Substance: ACETAMINOPHEN
     Route: 065
  10. CALCIPARINE [Suspect]
     Active Substance: HEPARIN CALCIUM
     Indication: THROMBOSIS PROPHYLAXIS
     Dosage: 2 DOSAGE FORMS DAILY; UNDER CUTANEOUS 5 000 IU/0.2 ML
     Route: 058
     Dates: start: 201805, end: 20180627
  11. DIGOXINE NATIVELLE [Concomitant]
     Active Substance: DIGOXIN
     Route: 065

REACTIONS (1)
  - Neutropenia [Recovered/Resolved]

NARRATIVE: CASE EVENT DATE: 20180627
